FAERS Safety Report 8473814 (Version 2)
Quarter: 2013Q1

REPORT INFORMATION
  Report Type: Spontaneous
  Country: JP (occurrence: JP)
  Receive Date: 20120323
  Receipt Date: 20130319
  Transmission Date: 20140127
  Serious: Yes (Hospitalization)
  Sender: FDA-Public Use
  Company Number: JP-SANOFI-AVENTIS-2012SA018948

PATIENT
  Age: 83 Year
  Sex: Male
  Weight: 50 kg

DRUGS (7)
  1. ELPLAT [Suspect]
     Indication: COLON CANCER
     Route: 041
     Dates: start: 20120305, end: 20120305
  2. 5-FU [Suspect]
     Indication: COLON CANCER
     Route: 040
     Dates: start: 20120305, end: 20120305
  3. 5-FU [Suspect]
     Indication: COLON CANCER
     Route: 041
     Dates: start: 20120305, end: 20120305
  4. CALCIUM LEVOFOLINATE [Concomitant]
     Indication: COLON CANCER
     Route: 041
     Dates: start: 20120305, end: 20120305
  5. EMEND [Concomitant]
     Dates: start: 20120305, end: 20120307
  6. GRANISETRON [Concomitant]
     Dates: start: 20120305, end: 20120305
  7. DEXAMETHASONE SODIUM PHOSPHATE [Concomitant]
     Dates: start: 20120305, end: 20120305

REACTIONS (1)
  - Hyperammonaemia [Recovered/Resolved]
